FAERS Safety Report 9555754 (Version 1)
Quarter: 2013Q3

REPORT INFORMATION
  Report Type: Spontaneous
  Country: US (occurrence: None)
  Receive Date: 20130925
  Receipt Date: 20130925
  Transmission Date: 20140515
  Serious: Yes (Life-Threatening, Hospitalization, Disabling)
  Sender: FDA-Public Use
  Company Number: None

PATIENT
  Age: 57 Year
  Sex: Female
  Weight: 79.38 kg

DRUGS (1)
  1. 6 MERCAPTOPURINE [Suspect]
     Indication: COLITIS ULCERATIVE
     Dosage: 1 TAB
     Route: 048
     Dates: start: 20130102, end: 20130122

REACTIONS (5)
  - Diarrhoea [None]
  - Migraine [None]
  - Pancreatitis acute [None]
  - Blood glucose fluctuation [None]
  - Glucose tolerance impaired [None]
